FAERS Safety Report 16799726 (Version 1)
Quarter: 2019Q3

REPORT INFORMATION
  Report Type: Spontaneous
  Country: FI (occurrence: FI)
  Receive Date: 20190912
  Receipt Date: 20190912
  Transmission Date: 20191005
  Serious: Yes (Hospitalization)
  Sender: FDA-Public Use
  Company Number: FI-B.I. PHARMACEUTICALS,INC./RIDGEFIELD-2019-12-101901

PATIENT
  Age: 65 Year
  Sex: Female

DRUGS (5)
  1. KESTINE [Concomitant]
     Active Substance: EBASTINE
     Indication: PRODUCT USED FOR UNKNOWN INDICATION
     Dosage: 10,MG,DAILY
     Route: 065
  2. JANUVIA [Concomitant]
     Active Substance: SITAGLIPTIN PHOSPHATE
     Indication: DIABETES MELLITUS
     Dosage: 100,MG,DAILY
     Route: 065
     Dates: start: 201905, end: 20190821
  3. CARDIOL [CARVEDILOL] [Concomitant]
     Indication: HYPERTENSION
     Dosage: 12.5,MG,DAILY
     Route: 065
  4. KALEORID [Concomitant]
     Active Substance: POTASSIUM CHLORIDE
     Indication: HYPOKALAEMIA
     Dosage: 1,G,DAILY
     Route: 065
  5. JARDIANCE [Suspect]
     Active Substance: EMPAGLIFLOZIN
     Indication: DIABETES MELLITUS
     Dosage: 25,MG,DAILY
     Route: 048
     Dates: start: 201907, end: 20190821

REACTIONS (1)
  - Metabolic acidosis [Not Recovered/Not Resolved]

NARRATIVE: CASE EVENT DATE: 20190823
